FAERS Safety Report 16651704 (Version 1)
Quarter: 2019Q3

REPORT INFORMATION
  Report Type: Spontaneous
  Country: US (occurrence: US)
  Receive Date: 20190730
  Receipt Date: 20190730
  Transmission Date: 20191004
  Serious: Yes (Life-Threatening, Hospitalization)
  Sender: FDA-Public Use
  Company Number: None

PATIENT
  Age: 16 Year
  Sex: Female

DRUGS (1)
  1. BACTRIM [Suspect]
     Active Substance: SULFAMETHOXAZOLE\TRIMETHOPRIM
     Indication: ACNE
     Route: 048
     Dates: start: 20150818, end: 20150910

REACTIONS (22)
  - Lip swelling [None]
  - Pulmonary alveolar haemorrhage [None]
  - Hepatorenal failure [None]
  - Heart rate increased [None]
  - Urticaria [None]
  - Pulmonary embolism [None]
  - Pyrexia [None]
  - Pneumomediastinum [None]
  - Therapy non-responder [None]
  - Blood pressure increased [None]
  - Hypoxia [None]
  - Oropharyngeal pain [None]
  - Hepatic failure [None]
  - Hypovolaemia [None]
  - Proteinuria [None]
  - Cough [None]
  - Chest pain [None]
  - Hypersensitivity vasculitis [None]
  - Pneumonia [None]
  - Systemic inflammatory response syndrome [None]
  - Respiratory distress [None]
  - Lung transplant [None]

NARRATIVE: CASE EVENT DATE: 20150910
